FAERS Safety Report 9021999 (Version 2)
Quarter: 2015Q2

REPORT INFORMATION
  Report Type: Report from Study
  Country: GB (occurrence: GB)
  Receive Date: 20130118
  Receipt Date: 20150518
  Transmission Date: 20150821
  Serious: Yes (Other)
  Sender: FDA-Public Use
  Company Number: GB-ROCHE-1178911

PATIENT
  Age: 68 Year
  Sex: Male
  Weight: 74 kg

DRUGS (7)
  1. BEVACIZUMAB [Suspect]
     Active Substance: BEVACIZUMAB
     Indication: GASTRIC CANCER
     Dosage: LAST DOSE TAKEN WAS 550 MG ON 11 APR 2012
     Route: 042
     Dates: start: 20120224
  2. CAPECITABINE. [Suspect]
     Active Substance: CAPECITABINE
     Indication: GASTRIC CANCER
     Dosage: LAST DOSE TAKEN WAS 2500 MG ON 2 MAY 2012
     Route: 048
     Dates: start: 20120224
  3. CITALOPRAM [Concomitant]
     Active Substance: CITALOPRAM HYDROBROMIDE
     Route: 048
     Dates: start: 20120124
  4. SPIRIVA [Concomitant]
     Active Substance: TIOTROPIUM BROMIDE MONOHYDRATE
     Dosage: TOTAL DAILY DOSE WAS 2 PUFFS
     Route: 065
     Dates: start: 20120124
  5. CISPLATIN. [Suspect]
     Active Substance: CISPLATIN
     Indication: GASTRIC CANCER
     Dosage: LAST DOSE TAKEN WAS 110 MG ON 11 APR 2012
     Route: 042
     Dates: start: 20120224
  6. EPIRUBICIN [Suspect]
     Active Substance: EPIRUBICIN
     Indication: GASTRIC CANCER
     Dosage: LAST DOSE PRIOR TO SAE WAS 90 MG ON 1/APR/2012
     Route: 042
     Dates: start: 20120224
  7. FRAGMIN [Concomitant]
     Active Substance: DALTEPARIN SODIUM
     Route: 058
     Dates: start: 20120612

REACTIONS (1)
  - Impaired healing [Recovered/Resolved]

NARRATIVE: CASE EVENT DATE: 20120614
